FAERS Safety Report 26163666 (Version 1)
Quarter: 2025Q4

REPORT INFORMATION
  Report Type: Spontaneous
  Country: US (occurrence: US)
  Receive Date: 20251216
  Receipt Date: 20251216
  Transmission Date: 20260118
  Serious: No
  Sender: QUAGEN PHARMACEUTICALS
  Company Number: US-QUAGEN-2025QUASPO00903

PATIENT

DRUGS (2)
  1. PROMETHAZINE HYDROCHLORIDE [Suspect]
     Active Substance: PROMETHAZINE HYDROCHLORIDE
     Indication: Vomiting
     Route: 065
  2. DRAMAMINE [Suspect]
     Active Substance: DIMENHYDRINATE
     Indication: Vomiting
     Route: 065

REACTIONS (1)
  - Drug ineffective [Unknown]
